FAERS Safety Report 6073153-X (Version None)
Quarter: 2009Q1

REPORT INFORMATION
  Report Type: 
  Country: None (occurrence: None)
  Receive Date: 20090211
  Receipt Date: 20090202
  Transmission Date: 20090719
  Serious: Yes (Hospitalization, Disabling)
  Sender: FDA-Public Use
  Company Number: FR-AMGEN-US322126

PATIENT
  Sex: Female
  Weight: 76 kg

DRUGS (9)
  1. ENBREL [Suspect]
     Indication: RHEUMATOID ARTHRITIS
     Dosage: 50 MG (FREQUENCY UNKNOWN)
     Route: 058
     Dates: start: 20041201, end: 20081101
  2. NOVATREX [Suspect]
     Indication: RHEUMATOID ARTHRITIS
     Dosage: 10 MG TOTAL WEEKLY
     Route: 048
     Dates: start: 20001004
  3. NEXIUM [Concomitant]
     Indication: HIATUS HERNIA
     Dosage: 40 MG
     Route: 048
     Dates: start: 20080312
  4. VENTOLIN [Concomitant]
     Indication: ASTHMA
     Dosage: 1 PUFF 2 TIMES PER DAY, IF NECESSARY
     Route: 055
  5. FUMAFER [Concomitant]
     Indication: IRON DEFICIENCY ANAEMIA
     Dosage: 3 DOSES TOTAL DAILY
     Route: 048
     Dates: start: 20080910
  6. SPECIAFOLDINE [Concomitant]
     Dosage: 10 MG, 48 HOURS AFTER NOVATREX INTAKE
     Route: 048
  7. EFFERALGAN [Concomitant]
     Indication: RHEUMATOID ARTHRITIS
     Dosage: 1 G, IF NECESSARY
     Route: 048
  8. INIPOMP [Concomitant]
     Route: 065
  9. DOLIPRANE [Concomitant]
     Route: 065

REACTIONS (6)
  - ANTINUCLEAR ANTIBODY POSITIVE [None]
  - BLINDNESS UNILATERAL [None]
  - CONJUNCTIVITIS [None]
  - CRYOGLOBULINAEMIA [None]
  - IRIDOCYCLITIS [None]
  - RETINAL ARTERY OCCLUSION [None]
